FAERS Safety Report 5565405-4 (Version None)
Quarter: 2007Q4

REPORT INFORMATION
  Report Type: 
  Country: None (occurrence: None)
  Receive Date: 20071218
  Receipt Date: 20041129
  Transmission Date: 20080405
  Serious: Yes (Death)
  Sender: FDA-Public Use
  Company Number: SE-ROCHE-387781

PATIENT
  Age: 64 Year
  Sex: Male

DRUGS (8)
  1. XELODA [Suspect]
     Indication: COLON CANCER
     Route: 065
     Dates: start: 20040525
  2. XELODA [Suspect]
     Dosage: DOSE WAS REDUCED.
     Route: 065
     Dates: end: 20040712
  3. LOPERAMID [Concomitant]
  4. BETAPRED [Concomitant]
  5. ZOFRAN [Concomitant]
  6. LAXOBERAL [Concomitant]
  7. PREDNISOLONE [Concomitant]
  8. PRIMPERAN INJ [Concomitant]

REACTIONS (3)
  - BURNING SENSATION [None]
  - DEATH [None]
  - DYSPHAGIA [None]
